FAERS Safety Report 9609173 (Version 2)
Quarter: 2013Q4

REPORT INFORMATION
  Report Type: Spontaneous
  Country: US (occurrence: US)
  Receive Date: 20131009
  Receipt Date: 20131009
  Transmission Date: 20140711
  Serious: No
  Sender: FDA-Public Use
  Company Number: US-PURDUE-USA-2012-0094476

PATIENT
  Age: 61 Year
  Sex: Female

DRUGS (6)
  1. BUTRANS [Suspect]
     Indication: PROCTALGIA
     Dosage: 5 MCG, WEEKLY
     Route: 062
     Dates: start: 20121012, end: 20121012
  2. BUTRANS [Suspect]
     Indication: BILIARY COLIC
  3. BUTRANS [Suspect]
     Indication: SPINAL PAIN
  4. BENADRYL                           /00000402/ [Concomitant]
     Indication: HYPERSENSITIVITY
     Dosage: 25 MG, PRN
     Route: 048
  5. LABETALOL [Concomitant]
     Indication: BLOOD PRESSURE
     Dosage: 25-50 MG, BID
     Route: 048
     Dates: start: 2006
  6. CLIMARA DUO [Concomitant]
     Indication: HORMONE REPLACEMENT THERAPY
     Dosage: 1 PATCH, DAILY
     Route: 062

REACTIONS (8)
  - Blood pressure increased [Recovered/Resolved]
  - Feeling cold [Unknown]
  - Dysgeusia [Recovered/Resolved]
  - Heart rate increased [Unknown]
  - Nausea [Recovered/Resolved]
  - Tremor [Recovered/Resolved]
  - Chest discomfort [Recovered/Resolved]
  - Application site erythema [Recovered/Resolved]
